FAERS Safety Report 7112749-0 (Version None)
Quarter: 2010Q4

REPORT INFORMATION
  Report Type: 
  Country: None (occurrence: None)
  Receive Date: 20101119
  Receipt Date: 20101110
  Transmission Date: 20110411
  Serious: Yes (Hospitalization)
  Sender: FDA-Public Use
  Company Number: US-BRISTOL-MYERS SQUIBB COMPANY-15377286

PATIENT

DRUGS (1)
  1. ONGLYZA [Suspect]

REACTIONS (1)
  - ANAPHYLACTIC SHOCK [None]
